FAERS Safety Report 8090147-3 (Version None)
Quarter: 2012Q1

REPORT INFORMATION
  Report Type: 
  Country: None (occurrence: None)
  Receive Date: 20120129
  Receipt Date: 20111018
  Transmission Date: 20120608
  Serious: No
  Sender: FDA-Public Use
  Company Number: US-ABBOTT-11P-163-0866477-00

PATIENT
  Age: 61 Year
  Sex: Female

DRUGS (3)
  1. HUMIRA [Suspect]
     Indication: PSORIATIC ARTHROPATHY
     Dates: start: 20090101
  2. NAPROSYN [Concomitant]
     Indication: PAIN
  3. ACETAMINOPHEN [Concomitant]
     Indication: PAIN

REACTIONS (5)
  - COUGH [None]
  - PAIN [None]
  - PYREXIA [None]
  - INFLUENZA [None]
  - NASAL CONGESTION [None]
